FAERS Safety Report 9549261 (Version 6)
Quarter: 2014Q2

REPORT INFORMATION
  Report Type: Report from Study
  Country: CA (occurrence: CA)
  Receive Date: 20130924
  Receipt Date: 20140415
  Transmission Date: 20141212
  Serious: Yes (Hospitalization, Other)
  Sender: FDA-Public Use
  Company Number: CA-CELGENEUS-028-21880-13011368

PATIENT
  Age: 76 Year
  Sex: Male
  Weight: 55.1 kg

DRUGS (28)
  1. REVLIMID [Suspect]
     Indication: PLASMA CELL MYELOMA
     Dosage: 25 MILLIGRAM
     Route: 048
     Dates: start: 20121107
  2. DEXAMETHASONE [Suspect]
     Indication: PLASMA CELL MYELOMA
     Route: 048
     Dates: start: 20121107
  3. DEXAMETHASONE [Suspect]
     Route: 041
     Dates: start: 20121108
  4. DEXAMETHASONE [Suspect]
     Route: 048
     Dates: start: 20121107
  5. ELOTUZUMAB [Suspect]
     Indication: PLASMA CELL MYELOMA
     Route: 041
     Dates: start: 20121108
  6. ASA [Concomitant]
     Indication: PRODUCT USED FOR UNKNOWN INDICATION
     Route: 065
     Dates: start: 2012
  7. FLOMAX [Concomitant]
     Indication: PRODUCT USED FOR UNKNOWN INDICATION
     Route: 065
     Dates: start: 200407
  8. FLOMAX [Concomitant]
     Route: 065
     Dates: start: 201309
  9. NEUPOGEN [Concomitant]
     Indication: ADVERSE EVENT
     Route: 065
     Dates: start: 20121209
  10. OXEZE [Concomitant]
     Indication: PRODUCT USED FOR UNKNOWN INDICATION
     Route: 065
     Dates: start: 20121015
  11. PANTOPRAZOLE [Concomitant]
     Indication: PRODUCT USED FOR UNKNOWN INDICATION
     Route: 065
     Dates: start: 20130105, end: 20130111
  12. SIMVASTATIN [Concomitant]
     Indication: PRODUCT USED FOR UNKNOWN INDICATION
     Route: 065
     Dates: start: 201002, end: 20130702
  13. CASODEX [Concomitant]
     Indication: PROSTATE CANCER
     Route: 065
     Dates: start: 20130911
  14. PREDNISONE [Concomitant]
     Indication: ADVERSE EVENT
     Route: 065
     Dates: start: 20130424, end: 20130619
  15. PREDNISONE [Concomitant]
     Route: 065
     Dates: end: 20130715
  16. ONDANSETRON [Concomitant]
     Indication: ADVERSE EVENT
     Route: 065
     Dates: start: 20130926, end: 20131015
  17. ENOXAPAM [Concomitant]
     Indication: PRODUCT USED FOR UNKNOWN INDICATION
     Route: 065
     Dates: start: 20130925, end: 20131002
  18. TAZOBACTAM [Concomitant]
     Indication: ADVERSE EVENT
     Route: 065
     Dates: start: 20130927, end: 20130930
  19. FORMOTEROL [Concomitant]
     Indication: ADVERSE EVENT
     Route: 065
     Dates: start: 201309
  20. PIPERACILLIN [Concomitant]
     Indication: ADVERSE EVENT
     Route: 065
     Dates: start: 20130927, end: 20130930
  21. TAMSULOSIN [Concomitant]
     Indication: ADVERSE EVENT
     Route: 065
     Dates: start: 201309
  22. GRANULOCYTE COLONY-STIMULATING FACTOR NOS [Concomitant]
     Indication: ADVERSE EVENT
     Route: 065
     Dates: start: 20130927, end: 20130927
  23. PRBC [Concomitant]
     Indication: ADVERSE EVENT
     Route: 041
     Dates: start: 20130927
  24. CLARITIN [Concomitant]
     Indication: ADVERSE EVENT
     Route: 065
     Dates: start: 20130407, end: 20130522
  25. BENADRYL [Concomitant]
     Indication: ADVERSE EVENT
     Route: 065
     Dates: start: 20130424, end: 20130619
  26. OXYGEN [Concomitant]
     Indication: ADVERSE EVENT
     Route: 065
     Dates: start: 20130926, end: 20130928
  27. NORMAL SALINE [Concomitant]
     Indication: ADVERSE EVENT
     Route: 041
     Dates: start: 20130904, end: 20130904
  28. ELAVIL [Concomitant]
     Indication: ADVERSE EVENT
     Route: 065
     Dates: start: 20131206

REACTIONS (3)
  - Prostate cancer [Not Recovered/Not Resolved]
  - Failure to thrive [Recovered/Resolved]
  - Lobar pneumonia [Recovered/Resolved]
